FAERS Safety Report 9420349 (Version 1)
Quarter: 2013Q3

REPORT INFORMATION
  Report Type: Spontaneous
  Country: US (occurrence: US)
  Receive Date: 20130725
  Receipt Date: 20130725
  Transmission Date: 20140515
  Serious: No
  Sender: FDA-Public Use
  Company Number: US-ABBOTT-13P-163-1047240-00

PATIENT
  Sex: Female
  Weight: 19.98 kg

DRUGS (2)
  1. SYNTHROID [Suspect]
     Indication: CONGENITAL HYPOTHYROIDISM
     Dates: start: 2006
  2. ALBUTEROL HFA [Concomitant]
     Indication: PRODUCT USED FOR UNKNOWN INDICATION

REACTIONS (8)
  - Inappropriate schedule of drug administration [Not Recovered/Not Resolved]
  - Overdose [Not Recovered/Not Resolved]
  - Increased tendency to bruise [Not Recovered/Not Resolved]
  - Haemorrhage [Not Recovered/Not Resolved]
  - Educational problem [Not Recovered/Not Resolved]
  - Weight gain poor [Not Recovered/Not Resolved]
  - Skin disorder [Not Recovered/Not Resolved]
  - Thyroid function test abnormal [Not Recovered/Not Resolved]
